FAERS Safety Report 20840911 (Version 1)
Quarter: 2022Q2

REPORT INFORMATION
  Report Type: Spontaneous
  Country: US (occurrence: None)
  Receive Date: 20220517
  Receipt Date: 20220517
  Transmission Date: 20220721
  Serious: Yes (Death)
  Sender: FDA-Public Use
  Company Number: None

PATIENT
  Age: 81 Year
  Sex: Female
  Weight: 52.9 kg

DRUGS (4)
  1. ALTEPLASE [Suspect]
     Active Substance: ALTEPLASE
     Indication: Ischaemic stroke
     Dates: start: 20220429, end: 20220429
  2. Aspirin 81 mg po daily [Concomitant]
     Dates: start: 20220427, end: 20220429
  3. Enoxaparin 40 mg SQ daily [Concomitant]
     Dates: start: 20220427, end: 20220429
  4. Ticagrelor 90 mg po BID [Concomitant]
     Dates: start: 20220427, end: 20220429

REACTIONS (1)
  - Subdural haematoma [None]

NARRATIVE: CASE EVENT DATE: 20220429
